FAERS Safety Report 8823380 (Version 2)
Quarter: 2012Q4

REPORT INFORMATION
  Report Type: 
  Country: US (occurrence: US)
  Receive Date: 20121003
  Receipt Date: 20121216
  Transmission Date: 20130627
  Serious: Yes (Death)
  Sender: FDA-Public Use
  Company Number: US-ALEXION-A201201800

PATIENT
  Sex: Female
  Weight: 60 kg

DRUGS (1)
  1. SOLIRIS 300MG [Suspect]
     Indication: OFF LABEL USE
     Dosage: UNK
     Route: 042

REACTIONS (1)
  - Non-Hodgkin^s lymphoma [Fatal]
